FAERS Safety Report 8990523 (Version 3)
Quarter: 2013Q2

REPORT INFORMATION
  Report Type: Spontaneous
  Country: NL (occurrence: NL)
  Receive Date: 20121228
  Receipt Date: 20130415
  Transmission Date: 20140414
  Serious: Yes (Hospitalization, Other)
  Sender: FDA-Public Use
  Company Number: NL-BAYER-2012-128470

PATIENT
  Age: 60 Year
  Sex: 0

DRUGS (4)
  1. BETAFERON [Suspect]
     Indication: PRODUCT USED FOR UNKNOWN INDICATION
     Dosage: UNK
     Dates: start: 200812, end: 201212
  2. AMPYRA [Concomitant]
     Indication: GAIT DISTURBANCE
     Dosage: UNK
     Dates: start: 201208
  3. SIRDALUD [Concomitant]
     Dosage: UNK
     Dates: end: 2012
  4. AMITRIPTYLINE [Concomitant]

REACTIONS (7)
  - Pancreatitis [Not Recovered/Not Resolved]
  - Paraparesis [None]
  - Neurological decompensation [None]
  - Cholelithiasis [None]
  - Pancreatic cyst [None]
  - Pyrexia [None]
  - Pancreatitis relapsing [None]
